FAERS Safety Report 6285174-2 (Version None)
Quarter: 2009Q3

REPORT INFORMATION
  Report Type: 
  Country: None (occurrence: None)
  Receive Date: 20090727
  Receipt Date: 20090715
  Transmission Date: 20100115
  Serious: Yes (Hospitalization, Other)
  Sender: FDA-Public Use
  Company Number: PHHY2009FR29490

PATIENT
  Sex: Male

DRUGS (3)
  1. CERTICAN [Suspect]
     Indication: LUNG TRANSPLANT
     Dosage: 2.5 MG DAILY
     Route: 048
     Dates: start: 20070501, end: 20080505
  2. PROGRAF [Concomitant]
     Indication: LUNG TRANSPLANT
  3. OXYGEN [Concomitant]

REACTIONS (16)
  - AORTIC VALVE INCOMPETENCE [None]
  - BLOOD SODIUM DECREASED [None]
  - C-REACTIVE PROTEIN INCREASED [None]
  - DYSPNOEA [None]
  - GLOMERULAR FILTRATION RATE DECREASED [None]
  - HAEMATOCRIT DECREASED [None]
  - HAEMOGLOBIN DECREASED [None]
  - INTERSTITIAL LUNG DISEASE [None]
  - LUNG INFECTION PSEUDOMONAL [None]
  - MITRAL VALVE INCOMPETENCE [None]
  - PLATELET COUNT INCREASED [None]
  - PYREXIA [None]
  - RENAL FAILURE CHRONIC [None]
  - RENAL TRANSPLANT [None]
  - VENTRICULAR HYPERKINESIA [None]
  - WHITE BLOOD CELL COUNT INCREASED [None]
